FAERS Safety Report 25502044 (Version 1)
Quarter: 2025Q3

REPORT INFORMATION
  Report Type: Report from Study
  Country: US (occurrence: US)
  Receive Date: 20250702
  Receipt Date: 20250702
  Transmission Date: 20251021
  Serious: Yes (Hospitalization)
  Sender: ABBVIE
  Company Number: US-ABBVIE-6348031

PATIENT
  Age: 83 Year
  Sex: Female

DRUGS (1)
  1. RINVOQ [Suspect]
     Active Substance: UPADACITINIB
     Indication: Product used for unknown indication
     Route: 048
     Dates: start: 20250318, end: 20250618

REACTIONS (5)
  - Haemoglobin decreased [Unknown]
  - Haematocrit decreased [Unknown]
  - Hepatic enzyme increased [Unknown]
  - Heart rate decreased [Unknown]
  - Oxygen saturation decreased [Unknown]

NARRATIVE: CASE EVENT DATE: 20250601
